FAERS Safety Report 5802382-2 (Version None)
Quarter: 2008Q3

REPORT INFORMATION
  Report Type: 
  Country: None (occurrence: None)
  Receive Date: 20080707
  Receipt Date: 20080627
  Transmission Date: 20090109
  Serious: Yes (Death)
  Sender: FDA-Public Use
  Company Number: JP-ABBOTT-08P-087-0460747-00

PATIENT
  Age: 33 Year
  Sex: Female

DRUGS (1)
  1. AKINETON [Suspect]
     Indication: DRUG USE FOR UNKNOWN INDICATION
     Route: 048
     Dates: start: 19910201, end: 20060801

REACTIONS (5)
  - DEATH [None]
  - DISSEMINATED INTRAVASCULAR COAGULATION [None]
  - MULTI-ORGAN FAILURE [None]
  - NEUROLEPTIC MALIGNANT SYNDROME [None]
  - SEPSIS [None]
